FAERS Safety Report 6888818-7 (Version None)
Quarter: 2010Q3

REPORT INFORMATION
  Report Type: 
  Country: None (occurrence: None)
  Receive Date: 20100730
  Receipt Date: 20100721
  Transmission Date: 20110219
  Serious: Yes (Disabling, Other)
  Sender: FDA-Public Use
  Company Number: US-ABBOTT-10P-163-0659511-00

PATIENT
  Sex: Male
  Weight: 54.934 kg

DRUGS (9)
  1. HUMIRA [Suspect]
     Indication: CROHN'S DISEASE
     Dates: start: 20100101, end: 20100201
  2. HUMIRA [Suspect]
     Dates: start: 20100601, end: 20100701
  3. PENTASA [Concomitant]
     Indication: CROHN'S DISEASE
     Dates: start: 20050101
  4. PENTASA [Concomitant]
  5. PENTASA [Concomitant]
     Dates: end: 20100701
  6. GABAPENTIN [Concomitant]
     Indication: CONVULSION
     Dosage: PRN AT BEDTIME
  7. GABAPENTIN [Concomitant]
     Indication: TREMOR
  8. RAW IRON VITAMIN [Concomitant]
     Indication: ANAEMIA PROPHYLAXIS
  9. RAW IRON VITAMIN [Concomitant]

REACTIONS (15)
  - ANAL FISTULA [None]
  - ANORECTAL DISORDER [None]
  - BEDRIDDEN [None]
  - CHAPPED LIPS [None]
  - DEHYDRATION [None]
  - DYSPNOEA [None]
  - FATIGUE [None]
  - HAEMATOCHEZIA [None]
  - HEADACHE [None]
  - PAIN [None]
  - PYREXIA [None]
  - RASH PAPULAR [None]
  - RECTAL DISCHARGE [None]
  - RECTAL HAEMORRHAGE [None]
  - WEIGHT DECREASED [None]
